FAERS Safety Report 7254188-8 (Version None)
Quarter: 2011Q1

REPORT INFORMATION
  Report Type: 
  Country: None (occurrence: None)
  Receive Date: 20110129
  Receipt Date: 20100212
  Transmission Date: 20110831
  Serious: No
  Sender: FDA-Public Use
  Company Number: US-ABBOTT-10P-163-0626003-00

PATIENT
  Sex: Male
  Weight: 96.248 kg

DRUGS (5)
  1. FOLIC ACID [Concomitant]
     Indication: PSORIATIC ARTHROPATHY
  2. METHYLPRED [Concomitant]
     Indication: PSORIATIC ARTHROPATHY
  3. METHOTREXATE [Concomitant]
     Indication: PSORIATIC ARTHROPATHY
  4. HUMIRA [Suspect]
     Indication: PSORIATIC ARTHROPATHY
     Dates: start: 20080101
  5. NAXOPREN [Concomitant]
     Indication: PSORIATIC ARTHROPATHY

REACTIONS (4)
  - NASAL DISCOMFORT [None]
  - DRUG DOSE OMISSION [None]
  - EYE PRURITUS [None]
  - RHINORRHOEA [None]
